FAERS Safety Report 9483936 (Version 1)
Quarter: 2013Q3

REPORT INFORMATION
  Report Type: Report from Study
  Country: US (occurrence: US)
  Receive Date: 20130828
  Receipt Date: 20130828
  Transmission Date: 20140515
  Serious: Yes (Hospitalization)
  Sender: FDA-Public Use
  Company Number: PHEH2013US018131

PATIENT
  Sex: Male
  Weight: 45.35 kg

DRUGS (2)
  1. TOBI [Suspect]
     Dosage: 300 MG/5 ML, BID
  2. PULMOZYME [Concomitant]
     Dosage: 1 MG/ML, UNK

REACTIONS (1)
  - Nasopharyngitis [Unknown]
